FAERS Safety Report 17237061 (Version 2)
Quarter: 2020Q1

REPORT INFORMATION
  Report Type: Spontaneous
  Country: US (occurrence: US)
  Receive Date: 20200106
  Receipt Date: 20200309
  Transmission Date: 20200409
  Serious: No
  Sender: FDA-Public Use
  Company Number: US-PFIZER INC-2020001084

PATIENT
  Age: 32 Year
  Sex: Female

DRUGS (1)
  1. ZARONTIN [Suspect]
     Active Substance: ETHOSUXIMIDE
     Dosage: 250 MG, DAILY (TAKE 1 CAPSULE (250 MG TOTAL) BY MOUTH DAILY)
     Route: 048

REACTIONS (2)
  - Off label use [Unknown]
  - Product use issue [Unknown]
